FAERS Safety Report 9714109 (Version 1)
Quarter: 2013Q4

REPORT INFORMATION
  Report Type: Spontaneous
  Country: US (occurrence: US)
  Receive Date: 20131126
  Receipt Date: 20131126
  Transmission Date: 20140711
  Serious: No
  Sender: FDA-Public Use
  Company Number: US-GILEAD-2008-0018871

PATIENT
  Age: 76 Year
  Sex: Female
  Weight: 67 kg

DRUGS (10)
  1. LETAIRIS [Suspect]
     Indication: PULMONARY ARTERIAL HYPERTENSION
     Route: 048
     Dates: start: 20080208
  2. FUROSEMIDE [Concomitant]
  3. SPIRIVA [Concomitant]
  4. METHSCOPOLAM [Concomitant]
  5. LIPITOR [Concomitant]
  6. LIBRAX [Concomitant]
  7. ASA LO-DOSE [Concomitant]
  8. MIACALCIN [Concomitant]
  9. CALCIUM [Concomitant]
  10. CENTRUM [Concomitant]

REACTIONS (1)
  - Haemoglobin decreased [Not Recovered/Not Resolved]
